FAERS Safety Report 5050260-1 (Version None)
Quarter: 2006Q3

REPORT INFORMATION
  Report Type: 
  Country: None (occurrence: None)
  Receive Date: 20060713
  Receipt Date: 20060531
  Transmission Date: 20061208
  Serious: Yes (Life-Threatening)
  Sender: FDA-Public Use
  Company Number: PHBS2006NL08144

PATIENT
  Age: 77 Year
  Sex: Female
  Weight: 60 kg

DRUGS (4)
  1. SYNAPAUSE E3 [Concomitant]
  2. EXELON [Suspect]
     Indication: HALLUCINATION
     Dosage: 3 MG, BID
     Route: 048
     Dates: start: 20060425, end: 20060531
  3. METOPROLOL TARTRATE [Suspect]
     Dosage: 25 MG, BID
  4. SOLIFENACIN [Concomitant]

REACTIONS (3)
  - BRADYCARDIA [None]
  - DIZZINESS [None]
  - DRUG INTERACTION [None]
